FAERS Safety Report 17294183 (Version 1)
Quarter: 2020Q1

REPORT INFORMATION
  Report Type: Spontaneous
  Country: US (occurrence: US)
  Receive Date: 20200121
  Receipt Date: 20200121
  Transmission Date: 20200409
  Serious: No
  Sender: FDA-Public Use
  Company Number: US-SA-2020SA010194

PATIENT
  Sex: Female

DRUGS (7)
  1. SERTRALIN [SERTRALINE HYDROCHLORIDE] [Concomitant]
  2. METHYLPREDNISOLONE. [Concomitant]
     Active Substance: METHYLPREDNISOLONE
  3. EPINEPHRINE. [Concomitant]
     Active Substance: EPINEPHRINE
  4. PREDNISONE. [Concomitant]
     Active Substance: PREDNISONE
  5. DEXAMETHASONE SODIUM [Concomitant]
     Active Substance: DEXAMETHASONE
  6. DUPIXENT [Suspect]
     Active Substance: DUPILUMAB
     Dosage: 300 MG, QOW
     Route: 058
  7. DOXYCYCLINE HYCLATE. [Concomitant]
     Active Substance: DOXYCYCLINE HYCLATE

REACTIONS (2)
  - Unevaluable event [Unknown]
  - Product dose omission [Unknown]
